FAERS Safety Report 6496491-5 (Version None)
Quarter: 2009Q4

REPORT INFORMATION
  Report Type: 
  Country: None (occurrence: None)
  Receive Date: 20091125
  Receipt Date: 20081010
  Transmission Date: 20100525
  Serious: Yes (Other)
  Sender: FDA-Public Use
  Company Number: 2008BH010938

PATIENT
  Age: 59 Year
  Sex: Male

DRUGS (3)
  1. DIANEAL [Suspect]
     Dosage: 15 L;EVERY DAY;IP
     Route: 033
     Dates: start: 20050601
  2. INSULIN [Concomitant]
  3. HEPARIN [Concomitant]

REACTIONS (2)
  - PERITONEAL DIALYSIS COMPLICATION [None]
  - PERITONITIS BACTERIAL [None]
